FAERS Safety Report 13994791 (Version 1)
Quarter: 2017Q3

REPORT INFORMATION
  Report Type: Spontaneous
  Country: US (occurrence: None)
  Receive Date: 20170921
  Receipt Date: 20170921
  Transmission Date: 20171128
  Serious: Yes (Hospitalization)
  Sender: FDA-Public Use
  Company Number: None

PATIENT
  Age: 64 Year
  Sex: Male
  Weight: 79 kg

DRUGS (4)
  1. LEUCOVORIN CALCIUM. [Suspect]
     Active Substance: LEUCOVORIN CALCIUM
     Dates: end: 20170829
  2. 5-FLUOROURACIL (5-FU) [Suspect]
     Active Substance: FLUOROURACIL
     Dates: end: 20170829
  3. ELOXATIN [Suspect]
     Active Substance: OXALIPLATIN
     Dates: end: 20170829
  4. DEXAMETHASONE. [Concomitant]
     Active Substance: DEXAMETHASONE

REACTIONS (6)
  - Dyspnoea [None]
  - Nausea [None]
  - Hypophagia [None]
  - Blood glucose increased [None]
  - Blood sodium abnormal [None]
  - Blood creatinine abnormal [None]

NARRATIVE: CASE EVENT DATE: 20170908
